FAERS Safety Report 6470085-X (Version None)
Quarter: 2009Q4

REPORT INFORMATION
  Report Type: 
  Country: None (occurrence: None)
  Receive Date: 20091203
  Receipt Date: 20091126
  Transmission Date: 20100525
  Serious: Yes (Other)
  Sender: FDA-Public Use
  Company Number: JP-PFIZER INC-2009300581

PATIENT
  Age: 72 Year
  Sex: Male

DRUGS (4)
  1. ZITHROMAC SR [Suspect]
     Dosage: 2 G, 1X/DAY
     Route: 048
     Dates: start: 20091110, end: 20091110
  2. BROACT [Concomitant]
  3. LASIX [Concomitant]
     Indication: CARDIAC FAILURE
  4. HEPARIN [Concomitant]
     Indication: CARDIAC FAILURE

REACTIONS (1)
  - WHITE BLOOD CELL COUNT DECREASED [None]
